FAERS Safety Report 8383056-3 (Version None)
Quarter: 2012Q1

REPORT INFORMATION
  Report Type: 
  Country: None (occurrence: None)
  Receive Date: 20120323
  Receipt Date: 20110511
  Transmission Date: 20120608
  Serious: Yes (Hospitalization)
  Sender: FDA-Public Use
  Company Number: 163-21880-11051513

PATIENT
  Age: 76 Year
  Sex: Female

DRUGS (9)
  1. LYRICA [Concomitant]
  2. FUROSEIMDE (FUROSEMIDE) [Concomitant]
  3. EXTRA STRENGTH TYLENOL [Concomitant]
  4. METHADONE HCL (METHADONE HYDROCHLORIDE) [Concomitant]
  5. DEXAMETHASONE [Concomitant]
  6. AMLODIPINE BESYLATE [Concomitant]
  7. ACTOS [Concomitant]
  8. REVLIMID [Suspect]
     Indication: MULTIPLE MYELOMA
     Dosage: 25 MG, X15, PO
     Route: 048
     Dates: start: 20090429
  9. WARFARIN SODIUM [Concomitant]

REACTIONS (1)
  - DISEASE PROGRESSION [None]
